FAERS Safety Report 11870418 (Version 1)
Quarter: 2015Q4

REPORT INFORMATION
  Report Type: Spontaneous
  Country: US (occurrence: US)
  Receive Date: 20151228
  Receipt Date: 20151228
  Transmission Date: 20160305
  Serious: No
  Sender: FDA-Public Use
  Company Number: US-SA-2014SA171600

PATIENT
  Age: 89 Year
  Sex: Female

DRUGS (6)
  1. PLAVIX [Suspect]
     Active Substance: CLOPIDOGREL BISULFATE
     Route: 065
  2. WARFARIN [Concomitant]
     Active Substance: WARFARIN
  3. FEXOFENADINE [Concomitant]
     Active Substance: FEXOFENADINE\FEXOFENADINE HYDROCHLORIDE
  4. ELIQUIS [Suspect]
     Active Substance: APIXABAN
     Indication: ATRIAL FIBRILLATION
     Dosage: STRENGTH: 5MG.
     Route: 048
  5. XARELTO [Concomitant]
     Active Substance: RIVAROXABAN
  6. COUMADIN [Suspect]
     Active Substance: WARFARIN SODIUM
     Route: 065

REACTIONS (13)
  - Sinusitis [Unknown]
  - Feeling abnormal [Unknown]
  - Pruritus [Unknown]
  - Nasopharyngitis [Unknown]
  - Anxiety [Unknown]
  - Pain [Unknown]
  - Hypertension [Unknown]
  - Headache [Not Recovered/Not Resolved]
  - Nasal congestion [Unknown]
  - Dry eye [Unknown]
  - Insomnia [Unknown]
  - Eye pain [Unknown]
  - Tremor [Unknown]
